FAERS Safety Report 7148459-3 (Version None)
Quarter: 2010Q4

REPORT INFORMATION
  Report Type: 
  Country: None (occurrence: None)
  Receive Date: 20101209
  Receipt Date: 20101130
  Transmission Date: 20110411
  Serious: Yes (Hospitalization)
  Sender: FDA-Public Use
  Company Number: CA-JNJFOC-20100904865

PATIENT
  Sex: Male
  Weight: 100 kg

DRUGS (6)
  1. REMICADE [Suspect]
     Indication: CROHN'S DISEASE
     Route: 042
  2. REMICADE [Suspect]
     Route: 042
  3. REMICADE [Suspect]
     Route: 042
  4. REMICADE [Suspect]
     Route: 042
  5. PROZAC [Concomitant]
  6. ENTOCORT EC [Concomitant]

REACTIONS (3)
  - IMPAIRED HEALING [None]
  - INTESTINAL RESECTION [None]
  - WOUND INFECTION STAPHYLOCOCCAL [None]
